FAERS Safety Report 17065514 (Version 1)
Quarter: 2019Q4

REPORT INFORMATION
  Report Type: Spontaneous
  Country: US (occurrence: US)
  Receive Date: 20191122
  Receipt Date: 20191122
  Transmission Date: 20200122
  Serious: Yes (Other)
  Sender: FDA-Public Use
  Company Number: None

PATIENT
  Sex: Female

DRUGS (22)
  1. BUPROPN [Concomitant]
  2. CALCIUM [Concomitant]
     Active Substance: CALCIUM
  3. DULOXETINE. [Concomitant]
     Active Substance: DULOXETINE
  4. FLUTICASONE. [Concomitant]
     Active Substance: FLUTICASONE
  5. LEFLUNOMIDE. [Concomitant]
     Active Substance: LEFLUNOMIDE
  6. MELATONIN [Concomitant]
     Active Substance: MELATONIN
  7. NABUMETONE. [Concomitant]
     Active Substance: NABUMETONE
  8. FUROSEMIDE. [Concomitant]
     Active Substance: FUROSEMIDE
  9. LISINOPRIL. [Concomitant]
     Active Substance: LISINOPRIL
  10. ROSUVASTATIN. [Concomitant]
     Active Substance: ROSUVASTATIN
  11. MAGNESIUM [Concomitant]
     Active Substance: MAGNESIUM
  12. OMEPRAZOLE. [Concomitant]
     Active Substance: OMEPRAZOLE
  13. POT CHLORIDE [Concomitant]
     Active Substance: POTASSIUM CHLORIDE
  14. ALBUTEROL. [Concomitant]
     Active Substance: ALBUTEROL
  15. GABAPENTIN. [Concomitant]
     Active Substance: GABAPENTIN
  16. CARISOPRODOL. [Concomitant]
     Active Substance: CARISOPRODOL
  17. PROAIR HFA [Concomitant]
     Active Substance: ALBUTEROL SULFATE
  18. ACTEMRA [Suspect]
     Active Substance: TOCILIZUMAB
     Indication: RHEUMATOID ARTHRITIS
     Dosage: ?          OTHER FREQUENCY:WEEKLY;?
     Route: 058
     Dates: start: 20170807
  19. BAYER ASA [Concomitant]
  20. BAYER LOW [Concomitant]
  21. HYDROCO/APAP [Concomitant]
     Active Substance: ACETAMINOPHEN\HYDROCODONE
  22. POTASSIUM [Concomitant]
     Active Substance: POTASSIUM

REACTIONS (2)
  - Retinal vascular occlusion [None]
  - Unevaluable event [None]
